FAERS Safety Report 10691172 (Version 8)
Quarter: 2015Q2

REPORT INFORMATION
  Report Type: Spontaneous
  Country: US (occurrence: US)
  Receive Date: 20150105
  Receipt Date: 20150420
  Transmission Date: 20150821
  Serious: Yes (Hospitalization, Other)
  Sender: FDA-Public Use
  Company Number: US-UNITED THERAPEUTICS-UNT-2014-012907

PATIENT
  Age: 51 Year
  Sex: Male
  Weight: 95.24 kg

DRUGS (7)
  1. WARFARIN [Concomitant]
     Active Substance: WARFARIN
     Indication: PRODUCT USED FOR UNKNOWN INDICATION
  2. REMODULIN [Suspect]
     Active Substance: TREPROSTINIL
     Dosage: 0.015 ?G/KG, CONTINUING
     Route: 041
     Dates: start: 20141222
  3. LACTULOSE. [Suspect]
     Active Substance: LACTULOSE
     Indication: PRODUCT USED FOR UNKNOWN INDICATION
     Dosage: UNK, TID
  4. REMODULIN [Suspect]
     Active Substance: TREPROSTINIL
     Indication: PULMONARY HYPERTENSION
     Dosage: 0.020 ?G/KG, CONTINUING
     Route: 041
     Dates: start: 20141122
  5. VELETRI [Concomitant]
     Active Substance: EPOPROSTENOL
     Indication: PRODUCT USED FOR UNKNOWN INDICATION
  6. REMODULIN [Suspect]
     Active Substance: TREPROSTINIL
     Indication: PULMONARY ARTERIAL HYPERTENSION
     Dosage: 0.013 ?G/KG, CONTINUING
     Route: 041
     Dates: start: 20141217
  7. REMODULIN [Suspect]
     Active Substance: TREPROSTINIL
     Dosage: 0.013 ?G/KG, CONTINUING
     Route: 041
     Dates: start: 20141219

REACTIONS (14)
  - Fluid retention [Unknown]
  - Fluid overload [Unknown]
  - Musculoskeletal pain [Unknown]
  - Pyrexia [Unknown]
  - Dysuria [Unknown]
  - Pulmonary arterial hypertension [Unknown]
  - Flatulence [Unknown]
  - Oedema [Unknown]
  - Back pain [Unknown]
  - Hepatic cirrhosis [Unknown]
  - Rash [Unknown]
  - Headache [Unknown]
  - Burning sensation [Unknown]
  - Pain in extremity [Unknown]

NARRATIVE: CASE EVENT DATE: 2014
